FAERS Safety Report 14343756 (Version 2)
Quarter: 2018Q1

REPORT INFORMATION
  Report Type: Spontaneous
  Country: AT (occurrence: AT)
  Receive Date: 20180102
  Receipt Date: 20180103
  Transmission Date: 20180509
  Serious: Yes (Hospitalization)
  Sender: FDA-Public Use
  Company Number: AT-PFIZER INC-2017552457

PATIENT
  Age: 30 Year
  Sex: Female
  Weight: 100 kg

DRUGS (77)
  1. ZELDOX [Suspect]
     Active Substance: ZIPRASIDONE
     Indication: BIPOLAR DISORDER
     Dosage: 20 MG, UNK
     Route: 048
     Dates: start: 20151117, end: 20151117
  2. ABILIFY [Suspect]
     Active Substance: ARIPIPRAZOLE
     Dosage: 2.5 MG, QD
     Route: 048
     Dates: start: 20151105, end: 20151106
  3. TRITTICO [Suspect]
     Active Substance: TRAZODONE HYDROCHLORIDE
     Dosage: 250 MG, UNK
     Route: 048
     Dates: start: 20151108, end: 20151108
  4. TRITTICO [Suspect]
     Active Substance: TRAZODONE HYDROCHLORIDE
     Dosage: 150 MG, UNK
     Route: 048
     Dates: start: 20151107, end: 20151107
  5. RIVOTRIL [Concomitant]
     Active Substance: CLONAZEPAM
     Indication: PRODUCT USED FOR UNKNOWN INDICATION
     Dosage: 2 MG, UNK
     Route: 065
     Dates: start: 20151104, end: 20151105
  6. INDERAL [Concomitant]
     Active Substance: PROPRANOLOL HYDROCHLORIDE
     Dosage: 90 MG, UNK
     Route: 048
     Dates: start: 20151208, end: 20151210
  7. NOZINAN [Concomitant]
     Active Substance: LEVOMEPROMAZINE
     Indication: PRODUCT USED FOR UNKNOWN INDICATION
     Dosage: 150 MG, UNK
     Route: 065
     Dates: start: 20151111, end: 20151111
  8. LAMICTAL [Concomitant]
     Active Substance: LAMOTRIGINE
     Dosage: 75 MG, UNK
     Route: 048
     Dates: start: 20151105, end: 20151108
  9. LAMICTAL [Concomitant]
     Active Substance: LAMOTRIGINE
     Dosage: 100 MG, UNK
     Route: 048
     Dates: start: 20151109, end: 20151122
  10. AKINETON [Concomitant]
     Active Substance: BIPERIDEN HYDROCHLORIDE
     Dosage: 4 MG, UNK
     Route: 065
     Dates: start: 20151120, end: 20151120
  11. DOMINAL (PROTHIPENDYL HYDROCHLORIDE) [Concomitant]
     Active Substance: PROTHIPENDYL HYDROCHLORIDE
     Indication: PRODUCT USED FOR UNKNOWN INDICATION
     Dosage: 160 MG, UNK
     Route: 048
     Dates: start: 20151117, end: 20151121
  12. DOMINAL (PROTHIPENDYL HYDROCHLORIDE) [Concomitant]
     Active Substance: PROTHIPENDYL HYDROCHLORIDE
     Dosage: 160 MG, UNK
     Route: 048
     Dates: start: 20151105, end: 20151106
  13. GASTROZEPIN [Concomitant]
     Active Substance: PIRENZEPINE HYDROCHLORIDE
     Indication: PRODUCT USED FOR UNKNOWN INDICATION
     Dosage: 100 MG, UNK
     Route: 065
     Dates: start: 20151217, end: 20151221
  14. ABILIFY [Suspect]
     Active Substance: ARIPIPRAZOLE
     Dosage: 5 MG, QD
     Route: 048
     Dates: start: 20151117, end: 20151117
  15. CIPRALEX [Suspect]
     Active Substance: ESCITALOPRAM OXALATE
     Dosage: 10 MG, UNK
     Route: 048
     Dates: start: 20151113, end: 20151120
  16. SYCREST [Interacting]
     Active Substance: ASENAPINE MALEATE
     Dosage: 20 MG, UNK
     Route: 065
     Dates: start: 20151216, end: 20151220
  17. QUILONIUM R [Interacting]
     Active Substance: LITHIUM CARBONATE
     Dosage: UNK
  18. RIVOTRIL [Concomitant]
     Active Substance: CLONAZEPAM
     Dosage: 4 MG, UNK
     Route: 065
     Dates: start: 20151215, end: 20151226
  19. NOZINAN [Concomitant]
     Active Substance: LEVOMEPROMAZINE
     Dosage: 25 MG, UNK
     Route: 065
     Dates: start: 20151122, end: 20151122
  20. DOMINAL (PROTHIPENDYL HYDROCHLORIDE) [Concomitant]
     Active Substance: PROTHIPENDYL HYDROCHLORIDE
     Dosage: 120 MG, UNK
     Route: 048
  21. ZELDOX [Interacting]
     Active Substance: ZIPRASIDONE
     Dosage: 80 MG, UNK
     Route: 048
     Dates: start: 20151119, end: 20151119
  22. ZELDOX [Interacting]
     Active Substance: ZIPRASIDONE
     Dosage: 120 MG, UNK
     Route: 048
     Dates: start: 20151120, end: 20151121
  23. ABILIFY [Suspect]
     Active Substance: ARIPIPRAZOLE
     Dosage: 5 MG, QD
     Route: 048
     Dates: start: 20150105, end: 20151111
  24. ZYPREXA [Interacting]
     Active Substance: OLANZAPINE
     Dosage: UNK, PER DAY
     Route: 048
     Dates: start: 20151105, end: 20151215
  25. INDERAL [Concomitant]
     Active Substance: PROPRANOLOL HYDROCHLORIDE
     Dosage: 50 MG, UNK
     Route: 048
     Dates: start: 20151111, end: 20151111
  26. NEUROTROPIC CAPLETS [Concomitant]
     Dosage: 300 MG, UNK
     Route: 048
     Dates: start: 20151126, end: 20151130
  27. DOMINAL (PROTHIPENDYL HYDROCHLORIDE) [Concomitant]
     Active Substance: PROTHIPENDYL HYDROCHLORIDE
     Dosage: 80 MG, UNK
     Route: 048
     Dates: start: 20151115, end: 20151116
  28. TEMESTA (LORAZEPAM) [Concomitant]
     Active Substance: LORAZEPAM
     Dosage: UNK
  29. TEMESTA (LORAZEPAM) [Concomitant]
     Active Substance: LORAZEPAM
     Dosage: UNK
     Dates: start: 20151106, end: 20151227
  30. ZOLDEM [Concomitant]
     Active Substance: ZOLPIDEM TARTRATE
     Indication: PRODUCT USED FOR UNKNOWN INDICATION
     Dosage: UNK
     Route: 065
     Dates: start: 20151109, end: 20151109
  31. DIBONDRIN [Concomitant]
     Active Substance: DIPHENHYDRAMINE HYDROCHLORIDE
     Indication: PRODUCT USED FOR UNKNOWN INDICATION
     Dosage: 50 MG, UNK
     Route: 065
     Dates: start: 20151109, end: 20151109
  32. CIPRALEX [Suspect]
     Active Substance: ESCITALOPRAM OXALATE
     Dosage: 5 MG, UNK
     Route: 048
     Dates: start: 20151112, end: 20151112
  33. SYCREST [Interacting]
     Active Substance: ASENAPINE MALEATE
     Dosage: 15 MG, UNK
     Route: 065
     Dates: start: 20151215, end: 20151215
  34. SYCREST [Interacting]
     Active Substance: ASENAPINE MALEATE
     Dosage: 15 MG, UNK
     Route: 065
     Dates: start: 20151221, end: 20151230
  35. FLUCTINE [Suspect]
     Active Substance: FLUOXETINE HYDROCHLORIDE
     Indication: PRODUCT USED FOR UNKNOWN INDICATION
     Dosage: 20 MG, UNK
     Route: 065
     Dates: start: 20151122, end: 20151123
  36. RIVOTRIL [Concomitant]
     Active Substance: CLONAZEPAM
     Dosage: 2 MG, UNK
     Route: 065
     Dates: start: 20151203, end: 20151214
  37. INDERAL [Concomitant]
     Active Substance: PROPRANOLOL HYDROCHLORIDE
     Dosage: 40 MG, UNK
     Route: 048
     Dates: start: 20151212, end: 20151212
  38. NEUROTROPIC CAPLETS [Concomitant]
     Dosage: 600 MG, UNK
     Route: 048
     Dates: start: 20151109, end: 20151110
  39. NEUROTROPIC CAPLETS [Concomitant]
     Dosage: 900 MG, UNK
     Route: 048
     Dates: start: 201510, end: 20151108
  40. NEUROTROPIC CAPLETS [Concomitant]
     Dosage: 600 MG, UNK
     Route: 048
     Dates: start: 20151123, end: 20151125
  41. NOZINAN [Concomitant]
     Active Substance: LEVOMEPROMAZINE
     Dosage: 100 MG, UNK
     Route: 065
     Dates: start: 20151112, end: 20151112
  42. LAMICTAL [Concomitant]
     Active Substance: LAMOTRIGINE
     Dosage: 300 MG, UNK
     Route: 048
     Dates: start: 20151215
  43. NUBAIN [Concomitant]
     Active Substance: NALBUPHINE HYDROCHLORIDE
     Indication: PRODUCT USED FOR UNKNOWN INDICATION
     Dosage: 1 UNK, 1DF IN 100ML NACL
     Route: 065
     Dates: start: 20151204, end: 20151204
  44. RISPERDAL [Concomitant]
     Active Substance: RISPERIDONE
     Indication: BIPOLAR DISORDER
     Dosage: 2 MG, UNK
     Route: 065
     Dates: start: 20151105, end: 20151105
  45. RISPERDAL [Concomitant]
     Active Substance: RISPERIDONE
     Dosage: 1 MG, UNK
     Route: 065
     Dates: start: 20151106, end: 20151106
  46. AKINETON [Concomitant]
     Active Substance: BIPERIDEN HYDROCHLORIDE
     Indication: PRODUCT USED FOR UNKNOWN INDICATION
     Dosage: 2 MG, UNK
     Route: 048
     Dates: start: 20151221, end: 20151221
  47. PRAXITEN [Concomitant]
     Active Substance: OXAZEPAM
     Dosage: 50 MG, UNK
     Route: 065
     Dates: start: 20151120, end: 20151126
  48. ABILIFY [Suspect]
     Active Substance: ARIPIPRAZOLE
     Dosage: 2.5 MG, QD
     Route: 048
     Dates: start: 20150105, end: 20150117
  49. SYCREST [Interacting]
     Active Substance: ASENAPINE MALEATE
     Dosage: 10 MG, UNK
     Route: 065
     Dates: start: 20151212, end: 20151214
  50. RIVOTRIL [Concomitant]
     Active Substance: CLONAZEPAM
     Dosage: 4 MG, UNK
     Route: 065
     Dates: start: 20151202, end: 20151202
  51. RIVOTRIL [Concomitant]
     Active Substance: CLONAZEPAM
     Dosage: 1 MG, UNK
     Route: 065
     Dates: start: 20151106, end: 20151106
  52. INDERAL [Concomitant]
     Active Substance: PROPRANOLOL HYDROCHLORIDE
     Dosage: 30 MG, UNK
     Route: 048
     Dates: start: 20151124, end: 20151125
  53. LAMICTAL [Concomitant]
     Active Substance: LAMOTRIGINE
     Dosage: 200 MG, UNK
     Route: 048
     Dates: start: 20151123, end: 20151213
  54. PRAXITEN [Concomitant]
     Active Substance: OXAZEPAM
     Dosage: UNK
  55. SIFROL [Concomitant]
     Active Substance: PRAMIPEXOLE
     Indication: PRODUCT USED FOR UNKNOWN INDICATION
     Dosage: 0.26 MG, UNK
     Route: 065
     Dates: start: 20151203, end: 20151206
  56. ABILIFY [Suspect]
     Active Substance: ARIPIPRAZOLE
     Dosage: 5 MG, QD
     Route: 048
     Dates: start: 20151107, end: 20151111
  57. CIPRALEX [Suspect]
     Active Substance: ESCITALOPRAM OXALATE
     Dosage: 10 MG, UNK
     Route: 048
     Dates: start: 20151108, end: 20151109
  58. TRITTICO [Suspect]
     Active Substance: TRAZODONE HYDROCHLORIDE
     Indication: BIPOLAR DISORDER
     Dosage: 100 MG, UNK
     Route: 048
     Dates: start: 20160119
  59. TRITTICO [Suspect]
     Active Substance: TRAZODONE HYDROCHLORIDE
     Dosage: 150 MG, UNK
     Route: 048
     Dates: start: 20151203, end: 20160118
  60. INDERAL [Concomitant]
     Active Substance: PROPRANOLOL HYDROCHLORIDE
     Dosage: 60 MG, UNK
     Route: 048
     Dates: start: 20151202, end: 20151202
  61. INDERAL [Concomitant]
     Active Substance: PROPRANOLOL HYDROCHLORIDE
     Dosage: 20 MG, UNK
     Route: 048
     Dates: start: 20151215, end: 20151215
  62. INDERAL [Concomitant]
     Active Substance: PROPRANOLOL HYDROCHLORIDE
     Dosage: 30 MG, UNK
     Route: 048
     Dates: start: 20151119, end: 20151121
  63. NEUROTROPIC CAPLETS [Concomitant]
     Indication: PRODUCT USED FOR UNKNOWN INDICATION
     Dosage: 900 MG, UNK
     Route: 048
     Dates: start: 20151111, end: 20151122
  64. NOZINAN [Concomitant]
     Active Substance: LEVOMEPROMAZINE
     Dosage: 100 MG, UNK
     Route: 065
     Dates: start: 20151223, end: 20151223
  65. LAMICTAL [Concomitant]
     Active Substance: LAMOTRIGINE
     Indication: PRODUCT USED FOR UNKNOWN INDICATION
     Dosage: 250 MG, UNK
     Route: 048
     Dates: start: 20151214, end: 20151214
  66. TRUXAL [Concomitant]
     Active Substance: CHLORPROTHIXENE
     Indication: PRODUCT USED FOR UNKNOWN INDICATION
     Dosage: 50 MG, UNK
     Route: 065
     Dates: start: 20151105, end: 20151105
  67. ABILIFY [Suspect]
     Active Substance: ARIPIPRAZOLE
     Dosage: 7.5 MG, QD
     Route: 048
     Dates: start: 20151112, end: 20151115
  68. ABILIFY [Suspect]
     Active Substance: ARIPIPRAZOLE
     Dosage: 10 MG, QD
     Route: 048
     Dates: start: 20151116, end: 20151116
  69. INDERAL [Concomitant]
     Active Substance: PROPRANOLOL HYDROCHLORIDE
     Dosage: 30 MG, UNK
     Route: 048
     Dates: start: 20151213, end: 20151214
  70. AKINETON [Concomitant]
     Active Substance: BIPERIDEN HYDROCHLORIDE
     Dosage: 2 MG, UNK
     Route: 065
     Dates: start: 20151202, end: 20151202
  71. SYCREST [Interacting]
     Active Substance: ASENAPINE MALEATE
     Indication: PRODUCT USED FOR UNKNOWN INDICATION
     Dosage: UNK
     Route: 065
     Dates: start: 20151210, end: 20151211
  72. TRITTICO [Suspect]
     Active Substance: TRAZODONE HYDROCHLORIDE
     Dosage: 300 MG, UNK
     Route: 048
     Dates: start: 20151109, end: 20151202
  73. INDERAL [Concomitant]
     Active Substance: PROPRANOLOL HYDROCHLORIDE
     Dosage: 40 MG, UNK
     Route: 048
     Dates: start: 20151203, end: 20151207
  74. NOZINAN [Concomitant]
     Active Substance: LEVOMEPROMAZINE
     Dosage: 50 MG, UNK
     Route: 065
     Dates: start: 20151129, end: 20151129
  75. LAMICTAL [Concomitant]
     Active Substance: LAMOTRIGINE
     Dosage: 50 MG, UNK
     Route: 048
     Dates: start: 201506, end: 20151104
  76. PRAXITEN [Concomitant]
     Active Substance: OXAZEPAM
     Indication: PRODUCT USED FOR UNKNOWN INDICATION
     Dosage: 25 MG, UNK
     Route: 065
     Dates: start: 20151127, end: 20151214
  77. SIFROL [Concomitant]
     Active Substance: PRAMIPEXOLE
     Dosage: 0.34 MG, UNK
     Route: 065
     Dates: start: 20151207, end: 20151210

REACTIONS (5)
  - Blood alkaline phosphatase increased [Recovered/Resolved]
  - Gamma-glutamyltransferase increased [Recovered/Resolved]
  - Akathisia [Recovered/Resolved]
  - Alanine aminotransferase increased [Recovered/Resolved]
  - Drug interaction [Unknown]

NARRATIVE: CASE EVENT DATE: 20151105
